FAERS Safety Report 4665002-9 (Version None)
Quarter: 2005Q2

REPORT INFORMATION
  Report Type: 
  Country: None (occurrence: None)
  Receive Date: 20050517
  Receipt Date: 20050428
  Transmission Date: 20051028
  Serious: Yes (Death, Hospitalization, Other)
  Sender: FDA-Public Use
  Company Number: DE_050415663

PATIENT
  Age: 42 Year
  Sex: Female

DRUGS (2)
  1. XIGRIS [Suspect]
     Indication: SEPTIC SHOCK
     Dates: start: 20050407, end: 20050407
  2. CORTISON                 (CORTISONE ACETATE) [Concomitant]

REACTIONS (1)
  - HAEMORRHAGE [None]
